FAERS Safety Report 24391762 (Version 1)
Quarter: 2024Q4

REPORT INFORMATION
  Report Type: Report from Study
  Country: US (occurrence: US)
  Receive Date: 20241003
  Receipt Date: 20241003
  Transmission Date: 20250115
  Serious: Yes (Other)
  Sender: CIPLA
  Company Number: US-CIPLA LTD.-2024US10842

PATIENT

DRUGS (5)
  1. IRINOTECAN [Suspect]
     Active Substance: IRINOTECAN
     Indication: Small cell lung cancer recurrent
     Dosage: UNK
     Route: 065
  2. IRINOTECAN [Suspect]
     Active Substance: IRINOTECAN
     Dosage: 100MG/M2, UNK
     Route: 065
  3. IRINOTECAN [Suspect]
     Active Substance: IRINOTECAN
     Dosage: 75 MG/M2, UNK
     Route: 065
  4. VALEMETOSTAT [Suspect]
     Active Substance: VALEMETOSTAT
     Indication: Small cell lung cancer recurrent
     Dosage: UNK
     Route: 048
  5. VALEMETOSTAT [Suspect]
     Active Substance: VALEMETOSTAT
     Dosage: 50MG, UNK
     Route: 048

REACTIONS (5)
  - Duodenitis [Unknown]
  - Vomiting [Unknown]
  - Diarrhoea [Unknown]
  - Nausea [Unknown]
  - Anaemia [Unknown]
